FAERS Safety Report 8184366-5 (Version None)
Quarter: 2012Q1

REPORT INFORMATION
  Report Type: 
  Country: None (occurrence: None)
  Receive Date: 20120305
  Receipt Date: 20120221
  Transmission Date: 20120608
  Serious: Yes (Hospitalization, Other)
  Sender: FDA-Public Use
  Company Number: US-ELI_LILLY_AND_COMPANY-US201202006572

PATIENT
  Sex: Male

DRUGS (3)
  1. ZYPREXA [Suspect]
     Indication: SCHIZOPHRENIA
     Dosage: 10 MG, QD
     Dates: start: 20070101
  2. ZYPREXA [Suspect]
     Dosage: 10 MG, QD
  3. CARDIAC THERAPY [Concomitant]

REACTIONS (8)
  - MYOCARDIAL INFARCTION [None]
  - HYPERSENSITIVITY [None]
  - DRUG INEFFECTIVE [None]
  - DRUG DEPENDENCE [None]
  - DIARRHOEA [None]
  - DYSURIA [None]
  - VISUAL IMPAIRMENT [None]
  - DRUG WITHDRAWAL SYNDROME [None]
